FAERS Safety Report 9688920 (Version 2)
Quarter: 2013Q4

REPORT INFORMATION
  Report Type: Report from Study
  Country: AR (occurrence: AR)
  Receive Date: 20131114
  Receipt Date: 20131212
  Transmission Date: 20140711
  Serious: Yes (Hospitalization, Other)
  Sender: FDA-Public Use
  Company Number: PHHY2013AR130052

PATIENT
  Sex: Female

DRUGS (1)
  1. EXFORGE [Suspect]
     Indication: HYPERTENSION
     Dosage: 1 DF, (160/10 MG)
     Route: 048

REACTIONS (4)
  - Asthmatic crisis [Recovered/Resolved]
  - Nervousness [Recovered/Resolved]
  - Blood pressure decreased [Recovering/Resolving]
  - Somnolence [Recovering/Resolving]
